FAERS Safety Report 9732735 (Version 2)
Quarter: 2013Q4

REPORT INFORMATION
  Report Type: Spontaneous
  Country: US (occurrence: US)
  Receive Date: 20131204
  Receipt Date: 20131223
  Transmission Date: 20140711
  Serious: Yes (Death, Hospitalization, Disabling)
  Sender: FDA-Public Use
  Company Number: US-GLAXOSMITHKLINE-A1051636A

PATIENT
  Age: 58 Year
  Sex: Female

DRUGS (5)
  1. VOTRIENT [Suspect]
     Indication: RENAL CANCER
     Dosage: 4TAB PER DAY
     Route: 048
     Dates: start: 20120501
  2. ALLOPURINOL [Concomitant]
  3. AMLODIPINE [Concomitant]
  4. LEVOTHYROXIN [Concomitant]
  5. OMEPRAZOLE [Concomitant]

REACTIONS (2)
  - Death [Fatal]
  - Investigation [Unknown]
